FAERS Safety Report 15620542 (Version 5)
Quarter: 2018Q4

REPORT INFORMATION
  Report Type: Spontaneous
  Country: CN (occurrence: CN)
  Receive Date: 20181115
  Receipt Date: 20181228
  Transmission Date: 20190205
  Serious: Yes (Other)
  Sender: FDA-Public Use
  Company Number: CN-UCBSA-2018050359

PATIENT
  Age: 34 Year
  Sex: Male

DRUGS (6)
  1. KEPPRA [Suspect]
     Active Substance: LEVETIRACETAM
     Dosage: 1.5 G, 2X/DAY (BID)
     Route: 048
     Dates: start: 2017
  2. FUSIDIC ACID [Concomitant]
     Active Substance: FUSIDIC ACID
     Indication: SUBCUTANEOUS ABSCESS
  3. MELALEUCA ALTERNIFOLIA [Concomitant]
     Active Substance: TEA TREE OIL
     Indication: PRODUCT USED FOR UNKNOWN INDICATION
     Dosage: UNK
  4. KEPPRA [Suspect]
     Active Substance: LEVETIRACETAM
     Indication: EPILEPSY
     Dosage: 0.5 G, 2X/DAY (BID)
     Route: 048
     Dates: start: 201708
  5. FUSIDIC ACID [Concomitant]
     Active Substance: FUSIDIC ACID
     Indication: SUBCUTANEOUS ABSCESS
  6. OXCARBAZEPINE. [Concomitant]
     Active Substance: OXCARBAZEPINE
     Indication: EPILEPSY
     Dosage: 1.5 DF DAILY
     Dates: start: 201803

REACTIONS (15)
  - Subcutaneous abscess [Not Recovered/Not Resolved]
  - Nausea [Not Recovered/Not Resolved]
  - Irritability [Not Recovered/Not Resolved]
  - Anxiety [Not Recovered/Not Resolved]
  - Off label use [Unknown]
  - Nightmare [Not Recovered/Not Resolved]
  - Dysphoria [Not Recovered/Not Resolved]
  - Cough [Unknown]
  - Aggression [Unknown]
  - Chest pain [Not Recovered/Not Resolved]
  - Insomnia [Not Recovered/Not Resolved]
  - Asthenia [Unknown]
  - Vomiting [Not Recovered/Not Resolved]
  - Muscle spasms [Unknown]
  - Agitation [Unknown]

NARRATIVE: CASE EVENT DATE: 201708
